FAERS Safety Report 6466165-5 (Version None)
Quarter: 2009Q4

REPORT INFORMATION
  Report Type: 
  Country: None (occurrence: None)
  Receive Date: 20091201
  Receipt Date: 20091201
  Transmission Date: 20100525
  Serious: No
  Sender: FDA-Public Use
  Company Number: None

PATIENT
  Age: 72 Year
  Sex: Male

DRUGS (8)
  1. PACLITAXEL [Suspect]
     Indication: NON-SMALL CELL LUNG CANCER
     Dosage: 84 X1 -DOSE 3/7- IV
     Route: 042
     Dates: start: 20091027, end: 20091027
  2. GABAPENTIN [Concomitant]
  3. SIMVASTATIN [Concomitant]
  4. TIOTROPIUM [Concomitant]
  5. FISH OIL [Concomitant]
  6. PYRIDOXINE [Concomitant]
  7. RANITIDINE [Concomitant]
  8. DIPHENHYDRAMINE HCL [Concomitant]

REACTIONS (3)
  - BLOOD PRESSURE SYSTOLIC INCREASED [None]
  - CHILLS [None]
  - RESPIRATORY DISTRESS [None]
